FAERS Safety Report 5805889-7 (Version None)
Quarter: 2008Q3

REPORT INFORMATION
  Report Type: 
  Country: None (occurrence: None)
  Receive Date: 20080708
  Receipt Date: 20080626
  Transmission Date: 20090109
  Serious: Yes (Disabling)
  Sender: FDA-Public Use
  Company Number: OSCN-PR-0806S-0440

PATIENT
  Sex: Male

DRUGS (2)
  1. OMNISCAN [Suspect]
     Indication: DRUG USE FOR UNKNOWN INDICATION
     Dosage: SINGLE DOSE, I.V.; SINGLE DOSE, I.V.
     Route: 042
     Dates: start: 20040601, end: 20040601
  2. OMNISCAN [Suspect]
     Indication: DRUG USE FOR UNKNOWN INDICATION
     Dosage: SINGLE DOSE, I.V.; SINGLE DOSE, I.V.
     Route: 042
     Dates: start: 20040801, end: 20040801

REACTIONS (2)
  - IMPAIRED WORK ABILITY [None]
  - NEPHROGENIC SYSTEMIC FIBROSIS [None]
